FAERS Safety Report 15251688 (Version 1)
Quarter: 2018Q3

REPORT INFORMATION
  Report Type: Spontaneous
  Country: FR (occurrence: FR)
  Receive Date: 20180807
  Receipt Date: 20180807
  Transmission Date: 20181010
  Serious: Yes (Other)
  Sender: FDA-Public Use
  Company Number: FR-MYLANLABS-2018M1060027

PATIENT
  Sex: Male

DRUGS (2)
  1. CYPROTERONE ACETAT [Concomitant]
     Indication: GENDER REASSIGNMENT THERAPY
     Dosage: 50 TO 100MG DAILY, FOR 2 TO 3 MONTHS
  2. ESTRADIOL. [Suspect]
     Active Substance: ESTRADIOL
     Indication: GENDER REASSIGNMENT THERAPY
     Dosage: UNK

REACTIONS (2)
  - Breast cancer [Unknown]
  - Off label use [Unknown]
